FAERS Safety Report 14773111 (Version 1)
Quarter: 2018Q2

REPORT INFORMATION
  Report Type: Spontaneous
  Country: FR (occurrence: FR)
  Receive Date: 20180418
  Receipt Date: 20180418
  Transmission Date: 20180711
  Serious: Yes (Other)
  Sender: FDA-Public Use
  Company Number: FR-MERCK KGAA-2045923

PATIENT
  Sex: Female

DRUGS (1)
  1. NOVOTHYROX [Suspect]
     Active Substance: LEVOTHYROXINE SODIUM
     Indication: POST PROCEDURAL HYPOTHYROIDISM

REACTIONS (11)
  - Arthralgia [Recovering/Resolving]
  - Pain [None]
  - Joint stiffness [None]
  - Fatigue [Recovering/Resolving]
  - Insomnia [Recovering/Resolving]
  - Major depression [None]
  - Dizziness [None]
  - Irritability [None]
  - Migraine [Recovering/Resolving]
  - Peripheral swelling [None]
  - Grip strength decreased [None]
